FAERS Safety Report 8443632-6 (Version None)
Quarter: 2012Q2

REPORT INFORMATION
  Report Type: 
  Country: None (occurrence: None)
  Receive Date: 20120618
  Receipt Date: 20120607
  Transmission Date: 20120825
  Serious: Yes (Other)
  Sender: FDA-Public Use
  Company Number: US-JNJFOC-20120414304

PATIENT
  Sex: Female
  Weight: 56.7 kg

DRUGS (15)
  1. REMICADE [Suspect]
     Route: 042
     Dates: start: 20120101
  2. NUVIGIL [Concomitant]
     Route: 065
  3. CHOLECALCIFEROL [Concomitant]
     Indication: MEDICAL DIET
     Route: 048
  4. CALCIUM 600+D [Concomitant]
     Indication: MEDICAL DIET
     Route: 048
  5. REMICADE [Suspect]
     Route: 042
     Dates: start: 20080101
  6. FOSAMAX [Concomitant]
     Indication: OSTEOPOROSIS
     Route: 048
  7. SYNTHROID [Concomitant]
     Indication: THYROID DISORDER
     Route: 048
  8. COLAZAL [Concomitant]
     Dosage: 2 PILLS A DAY
     Route: 065
  9. REMICADE [Suspect]
     Route: 042
     Dates: start: 20120101, end: 20120101
  10. CALCIUM [Concomitant]
     Indication: MEDICAL DIET
     Route: 048
  11. VITAMIN D [Concomitant]
     Indication: MEDICAL DIET
     Route: 048
  12. VENLAFAXINE HCL [Concomitant]
     Route: 065
  13. REMICADE [Suspect]
     Indication: COLITIS ULCERATIVE
     Route: 042
     Dates: start: 20120426
  14. VESICARE [Concomitant]
     Indication: INCONTINENCE
     Route: 048
  15. ROPINIROLE [Concomitant]
     Dosage: 2 PILLS A DAY
     Route: 065

REACTIONS (7)
  - DRUG EFFECT DECREASED [None]
  - SOMNOLENCE [None]
  - GASTROINTESTINAL INFECTION [None]
  - ANXIETY [None]
  - RESTLESS LEGS SYNDROME [None]
  - NERVOUS SYSTEM DISORDER [None]
  - NERVOUSNESS [None]
